FAERS Safety Report 7528206-3 (Version None)
Quarter: 2011Q2

REPORT INFORMATION
  Report Type: 
  Country: None (occurrence: None)
  Receive Date: 20110607
  Receipt Date: 20101209
  Transmission Date: 20111010
  Serious: No
  Sender: FDA-Public Use
  Company Number: US-ASTRAZENECA-2010SE58598

PATIENT
  Age: 80 Year
  Sex: Female
  Weight: 59 kg

DRUGS (3)
  1. PRILOSEC [Suspect]
     Indication: ULCER
     Route: 048
     Dates: start: 20101117, end: 20101127
  2. OXYBUTYNIN [Suspect]
     Indication: POLLAKIURIA
     Dosage: 1 SACHET DAILY
     Route: 061
     Dates: start: 20101122, end: 20101127
  3. OXYBUTYNIN [Suspect]
     Indication: URINARY INCONTINENCE
     Dosage: 1 SACHET DAILY
     Route: 061
     Dates: start: 20101122, end: 20101127

REACTIONS (5)
  - EPISTAXIS [None]
  - CONSTIPATION [None]
  - CHILLS [None]
  - VOMITING [None]
  - NAUSEA [None]
